FAERS Safety Report 14242767 (Version 1)
Quarter: 2017Q4

REPORT INFORMATION
  Report Type: Spontaneous
  Country: US (occurrence: US)
  Receive Date: 20171201
  Receipt Date: 20171201
  Transmission Date: 20180321
  Serious: Yes (Other)
  Sender: FDA-Public Use
  Company Number: US-NAPPMUNDI-USA-2017-0141560

PATIENT
  Age: 57 Year
  Sex: Female

DRUGS (1)
  1. BUTRANS [Suspect]
     Active Substance: BUPRENORPHINE
     Indication: ANALGESIC THERAPY
     Dosage: 20 MCG/HR, WEEKLY
     Route: 062
     Dates: start: 2016, end: 20171106

REACTIONS (8)
  - Headache [Unknown]
  - Lymphadenopathy [Unknown]
  - Peripheral swelling [Recovering/Resolving]
  - Urticaria [Recovered/Resolved]
  - Memory impairment [Not Recovered/Not Resolved]
  - Arthropod bite [Unknown]
  - Pain in extremity [Not Recovered/Not Resolved]
  - Trigeminal neuralgia [Not Recovered/Not Resolved]

NARRATIVE: CASE EVENT DATE: 2016
